FAERS Safety Report 9054264 (Version 1)
Quarter: 2013Q1

REPORT INFORMATION
  Report Type: Spontaneous
  Country: FR (occurrence: FR)
  Receive Date: 20130208
  Receipt Date: 20130208
  Transmission Date: 20140127
  Serious: Yes (Disabling, Congenital Anomaly)
  Sender: FDA-Public Use
  Company Number: FR-VIIV HEALTHCARE LIMITED-B0862869A

PATIENT
  Age: 0 None
  Sex: Male

DRUGS (1)
  1. COMBIVIR [Suspect]
     Indication: HIV INFECTION
     Dosage: 1UNIT TWICE PER DAY
     Route: 064
     Dates: end: 20060407

REACTIONS (24)
  - Microcephaly [Not Recovered/Not Resolved]
  - Mental retardation [Not Recovered/Not Resolved]
  - Convulsion [Not Recovered/Not Resolved]
  - Encephalopathy [Unknown]
  - Hypertonia [Unknown]
  - Hyperreflexia [Unknown]
  - Agitation [Unknown]
  - Muscle spasms [Unknown]
  - Psychomotor retardation [Not Recovered/Not Resolved]
  - Speech disorder developmental [Unknown]
  - Balance disorder [Unknown]
  - Fall [Unknown]
  - Dysmorphism [Unknown]
  - Eye disorder [Unknown]
  - Hypertelorism of orbit [Unknown]
  - Nasal disorder [Unknown]
  - Ear malformation [Unknown]
  - High arched palate [Unknown]
  - Congenital foot malformation [Unknown]
  - Impaired self-care [Unknown]
  - Extrapyramidal disorder [Unknown]
  - Myoclonus [Unknown]
  - Myoclonic epilepsy [Unknown]
  - Foetal exposure during pregnancy [Unknown]
